FAERS Safety Report 10228751 (Version 1)
Quarter: 2014Q2

REPORT INFORMATION
  Report Type: Spontaneous
  Country: FR (occurrence: FR)
  Receive Date: 20140610
  Receipt Date: 20140610
  Transmission Date: 20141212
  Serious: Yes (Other)
  Sender: FDA-Public Use
  Company Number: FR-ELI_LILLY_AND_COMPANY-FR201406001864

PATIENT
  Age: 60 Year
  Sex: Female

DRUGS (3)
  1. FLUOXETINE HYDROCHLORIDE [Suspect]
     Indication: AFFECTIVE DISORDER
     Dosage: 20 MG, QD
     Route: 065
     Dates: start: 200909
  2. SULPIRIDE [Interacting]
     Indication: AFFECTIVE DISORDER
     Dosage: 200 MG, BID
     Route: 065
     Dates: start: 200909
  3. AGOMELATINE [Interacting]
     Indication: AFFECTIVE DISORDER
     Dosage: 25 MG, QD
     Route: 065
     Dates: start: 201201

REACTIONS (6)
  - Tachycardia [Recovered/Resolved]
  - Chest pain [Recovered/Resolved]
  - Nervousness [Recovered/Resolved]
  - Insomnia [Recovered/Resolved]
  - Drug interaction [Recovered/Resolved]
  - Drug ineffective [Recovered/Resolved]
